FAERS Safety Report 7938535-7 (Version None)
Quarter: 2011Q4

REPORT INFORMATION
  Report Type: 
  Country: None (occurrence: None)
  Receive Date: 20111123
  Receipt Date: 20111110
  Transmission Date: 20120403
  Serious: Yes (Hospitalization)
  Sender: FDA-Public Use
  Company Number: JP-AMGEN-US370043

PATIENT
  Age: 50 Year
  Sex: Female
  Weight: 46.991 kg

DRUGS (8)
  1. ENBREL [Suspect]
     Indication: JUVENILE ARTHRITIS
     Dosage: 25 MG, 2 TIMES/WK
     Route: 058
     Dates: start: 20090706, end: 20091001
  2. BUCILLAMINE [Concomitant]
     Dosage: UNK UNK, UNK
     Dates: start: 20010101
  3. FERROUS CITRATE [Concomitant]
     Dosage: 50 MG, QD
     Route: 048
     Dates: start: 20090304, end: 20091006
  4. FAMOTIDINE [Concomitant]
     Dosage: 20 MG, QD
     Route: 048
     Dates: start: 20090304, end: 20091006
  5. TACROLIMUS [Concomitant]
     Dosage: 2 MG, QD
     Route: 048
     Dates: start: 20090406, end: 20091006
  6. BUCILLAMINE [Concomitant]
     Dosage: 100 MG, QD
     Route: 048
     Dates: start: 20071229, end: 20090803
  7. NSAIDS [Concomitant]
     Dosage: UNK
     Route: 065
  8. DICLOFENAC SODIUM [Concomitant]
     Dosage: 75 MG, QD
     Route: 048
     Dates: start: 20040115, end: 20091006

REACTIONS (2)
  - TUBERCULOUS PLEURISY [None]
  - DRUG ERUPTION [None]
